FAERS Safety Report 9490099 (Version 2)
Quarter: 2013Q3

REPORT INFORMATION
  Report Type: Spontaneous
  Country: US (occurrence: US)
  Receive Date: 20130829
  Receipt Date: 20130903
  Transmission Date: 20140515
  Serious: Yes (Hospitalization)
  Sender: FDA-Public Use
  Company Number: US-ROCHE-1266785

PATIENT
  Age: 49 Year
  Sex: Female
  Weight: 86 kg

DRUGS (10)
  1. XELODA [Suspect]
     Indication: RECTAL CANCER
     Dosage: TAKE 5 TABLETS TWICE DAILY (2500 MG) 14 DAYS ON + 7 DAYS OFF
     Route: 048
     Dates: start: 20130621, end: 20130805
  2. BENADRYL (UNITED STATES) [Concomitant]
     Route: 065
  3. MOBIC [Concomitant]
     Route: 065
  4. PAXIL [Concomitant]
     Route: 065
  5. PERCOCET [Concomitant]
     Dosage: 5/325
     Route: 065
  6. ULTRAM [Concomitant]
  7. WELLBUTRIN [Concomitant]
     Route: 065
  8. XANAX [Concomitant]
  9. ALBUTEROL [Concomitant]
     Dosage: 1 PUFF AS NEEEDED
     Route: 065
  10. LOMOTIL (UNITED STATES) [Concomitant]
     Route: 048

REACTIONS (9)
  - Pyrexia [Unknown]
  - Asthenia [Unknown]
  - Blood electrolytes decreased [Unknown]
  - Diarrhoea [Unknown]
  - Nausea [Recovered/Resolved]
  - Vomiting [Recovered/Resolved]
  - Diarrhoea [Recovered/Resolved]
  - Hypokalaemia [Unknown]
  - Urinary tract infection [Unknown]
